FAERS Safety Report 8793507 (Version 2)
Quarter: 2012Q4

REPORT INFORMATION
  Report Type: 
  Country: US (occurrence: US)
  Receive Date: 20120918
  Receipt Date: 20120925
  Transmission Date: 20130627
  Serious: Yes (Life-Threatening, Hospitalization, Other)
  Sender: FDA-Public Use
  Company Number: US-BAYER-2012-096480

PATIENT
  Age: 39 Year
  Sex: Female
  Weight: 73.47 kg

DRUGS (8)
  1. YAZ [Suspect]
     Indication: CONTRACEPTION
     Dosage: UNK
     Dates: start: 20081027, end: 20100726
  2. VITAMIN C [Concomitant]
     Dosage: PRN
     Dates: start: 2001
  3. HYDROXYZINE [Concomitant]
     Indication: MULTIPLE ALLERGIES
     Dosage: UNK
     Dates: start: 200912, end: 201007
  4. NEXIUM [Concomitant]
     Indication: GASTROOESOPHAGEAL REFLUX DISEASE
     Dosage: 40 mg, UNK
     Dates: start: 20100503, end: 20100723
  5. CIPROFLOXACIN [Concomitant]
     Dosage: 500 mg, UNK
     Dates: start: 20100504
  6. SULFAMETHOXAZOLE [Concomitant]
     Dosage: UNK
     Dates: start: 201007
  7. MECLIZINE [Concomitant]
     Indication: MOTION SICKNESS
     Dosage: 25 mg, UNK
     Dates: start: 20100714
  8. HEMATINIC [CALCIUM ASCORBATE,CYANOCOBALAMIN,FOLIC ACID,IRON,LIVER [Concomitant]
     Indication: ANAEMIA
     Dosage: UNK
     Dates: start: 201007

REACTIONS (7)
  - Gallbladder disorder [None]
  - Cholecystitis chronic [None]
  - Anxiety [None]
  - Injury [None]
  - Pain [None]
  - Anhedonia [None]
  - Fear of disease [None]
